FAERS Safety Report 5120286-8 (Version None)
Quarter: 2006Q4

REPORT INFORMATION
  Report Type: 
  Country: None (occurrence: None)
  Receive Date: 20061004
  Receipt Date: 20060928
  Transmission Date: 20070319
  Serious: Yes (Hospitalization)
  Sender: FDA-Public Use
  Company Number: FR-BRISTOL-MYERS SQUIBB COMPANY-13525902

PATIENT
  Age: 42 Year
  Sex: Male

DRUGS (9)
  1. REYATAZ [Suspect]
     Route: 048
  2. NORVIR [Concomitant]
  3. CACIT D3 [Concomitant]
  4. TRUVADA [Concomitant]
  5. PHOSPHONEUROS [Concomitant]
  6. FOSAMAX [Concomitant]
  7. APROVEL [Concomitant]
  8. LIPANTHYL [Concomitant]
  9. ZOLPIDEM TARTRATE [Concomitant]

REACTIONS (1)
  - NEPHROLITHIASIS [None]
